FAERS Safety Report 8962951 (Version 1)
Quarter: 2012Q4

REPORT INFORMATION
  Report Type: Spontaneous
  Country: GB (occurrence: None)
  Receive Date: 20121205
  Receipt Date: 20121205
  Transmission Date: 20130627
  Serious: Yes (Life-Threatening, Other)
  Sender: FDA-Public Use
  Company Number: GB-BANPHARM-20120382

PATIENT
  Age: 77 Year
  Sex: Female

DRUGS (6)
  1. IBUPROFEN [Suspect]
     Indication: NECK PAIN
     Route: 048
     Dates: start: 1990
  2. BECLOMETHASONE [Concomitant]
  3. BENDROFLUZIDE [Concomitant]
  4. DOXAZOSIN [Concomitant]
  5. LOSARTAN [Concomitant]
  6. SALBUTAMOL [Concomitant]

REACTIONS (1)
  - Peptic ulcer perforation [None]
